FAERS Safety Report 22394620 (Version 3)
Quarter: 2025Q2

REPORT INFORMATION
  Report Type: Report from Study
  Country: US (occurrence: US)
  Receive Date: 20230601
  Receipt Date: 20250507
  Transmission Date: 20250716
  Serious: Yes (Life-Threatening, Other)
  Sender: TAKEDA
  Company Number: US-TAKEDA-2023TUS053959

PATIENT
  Age: 20 Year
  Sex: Female

DRUGS (2)
  1. ICATIBANT [Suspect]
     Active Substance: ICATIBANT ACETATE
     Indication: Immune system disorder
  2. ICATIBANT [Suspect]
     Active Substance: ICATIBANT ACETATE

REACTIONS (3)
  - Hereditary angioedema [Not Recovered/Not Resolved]
  - Pharyngitis [Unknown]
  - Fungal infection [Unknown]

NARRATIVE: CASE EVENT DATE: 20230528
